FAERS Safety Report 5573413-2 (Version None)
Quarter: 2007Q4

REPORT INFORMATION
  Report Type: 
  Country: None (occurrence: None)
  Receive Date: 20071220
  Receipt Date: 20071220
  Transmission Date: 20080405
  Serious: No
  Sender: FDA-Public Use
  Company Number: None

PATIENT

DRUGS (1)
  1. OCTREOTIDE ACETATE [Suspect]

REACTIONS (9)
  - BONE DISORDER [None]
  - CARTILAGE INJURY [None]
  - DRUG TOLERANCE INCREASED [None]
  - ERYTHEMA [None]
  - MASS [None]
  - NO THERAPEUTIC RESPONSE [None]
  - PAIN [None]
  - PRURITUS [None]
  - SWELLING [None]
